FAERS Safety Report 8161064-5 (Version None)
Quarter: 2012Q1

REPORT INFORMATION
  Report Type: 
  Country: None (occurrence: None)
  Receive Date: 20120224
  Receipt Date: 20120220
  Transmission Date: 20120608
  Serious: Yes (Life-Threatening, Hospitalization)
  Sender: FDA-Public Use
  Company Number: US-BRISTOL-MYERS SQUIBB COMPANY-16410185

PATIENT
  Age: 55 Year
  Sex: Female

DRUGS (4)
  1. COUMADIN [Suspect]
     Dosage: DOSE: 125 UNS
  2. TRACLEER [Concomitant]
     Dosage: DOSE:125
  3. TREPROSTINIL [Concomitant]
     Indication: PULMONARY ARTERIAL HYPERTENSION
     Dosage: TREPROSTINIL SODIUM
     Route: 055
     Dates: start: 20111118
  4. REVATIO [Concomitant]

REACTIONS (3)
  - LETHARGY [None]
  - VOMITING [None]
  - CEREBRAL HAEMORRHAGE [None]
